FAERS Safety Report 8572213-9 (Version None)
Quarter: 2012Q3

REPORT INFORMATION
  Report Type: 
  Country: None (occurrence: None)
  Receive Date: 20120806
  Receipt Date: 20120730
  Transmission Date: 20120928
  Serious: Yes (Other)
  Sender: FDA-Public Use
  Company Number: FR-ASTELLAS-2012EU004530

PATIENT
  Sex: Female
  Weight: 60 kg

DRUGS (2)
  1. VESICARE [Suspect]
     Dosage: 1 DF, UID/QD
     Route: 048
  2. VESICARE [Suspect]
     Indication: HYPERTONIC BLADDER
     Dosage: 2 DF, UID/QD
     Route: 048

REACTIONS (3)
  - FATIGUE [None]
  - BALANCE DISORDER [None]
  - GAIT DISTURBANCE [None]
